FAERS Safety Report 8176883-9 (Version None)
Quarter: 2012Q1

REPORT INFORMATION
  Report Type: 
  Country: None (occurrence: None)
  Receive Date: 20120301
  Receipt Date: 20120222
  Transmission Date: 20120608
  Serious: Yes (Other)
  Sender: FDA-Public Use
  Company Number: US-JNJFOC-20120205418

PATIENT
  Age: 62 Year
  Sex: Female
  Weight: 53.06 kg

DRUGS (2)
  1. MOTRIN [Suspect]
     Indication: PAIN
     Route: 065
  2. ACETYLSALICYLIC ACID SRT [Suspect]
     Indication: PRODUCT USED FOR UNKNOWN INDICATION
     Route: 065

REACTIONS (1)
  - GASTRIC HAEMORRHAGE [None]
